FAERS Safety Report 9355925 (Version 2)
Quarter: 2013Q3

REPORT INFORMATION
  Report Type: Spontaneous
  Country: JP (occurrence: JP)
  Receive Date: 20130619
  Receipt Date: 20130722
  Transmission Date: 20140515
  Serious: Yes (Death, Hospitalization)
  Sender: FDA-Public Use
  Company Number: JP-ROCHE-1238130

PATIENT
  Age: 56 Year
  Sex: Female
  Weight: 41 kg

DRUGS (36)
  1. AVASTIN [Suspect]
     Indication: BREAST CANCER METASTATIC
     Route: 041
     Dates: start: 20120417, end: 20121114
  2. XELODA [Suspect]
     Indication: BREAST CANCER METASTATIC
     Route: 048
     Dates: start: 20121201
  3. TAXOL [Suspect]
     Indication: BREAST CANCER METASTATIC
     Dosage: DOSAGE IS UNCERTAIN.
     Route: 041
  4. ENDOXAN [Concomitant]
     Indication: BREAST CANCER METASTATIC
     Dosage: UNCERTAIN DOSAGE AND TWO CYCLES
     Route: 048
     Dates: start: 20121201, end: 2013
  5. DESYREL [Concomitant]
     Dosage: BEFORE IT KNEADS
     Route: 048
     Dates: start: 20120413, end: 201211
  6. DEPAKENE [Concomitant]
     Dosage: AFTER THE SUPPER THE MORNING
     Route: 048
  7. DEPAKENE [Concomitant]
     Dosage: AFTER THE SUPPER THE MORNING
     Route: 048
     Dates: start: 20120807
  8. DEPAKENE [Concomitant]
     Dosage: AFTER THE SUPPER THE MORNING
     Route: 048
     Dates: start: 20120413
  9. JZOLOFT [Concomitant]
     Dosage: AFTER THE SUPPER
     Route: 048
     Dates: start: 20120413
  10. JZOLOFT [Concomitant]
     Dosage: AFTER THE SUPPER
     Route: 048
     Dates: start: 20120807
  11. JZOLOFT [Concomitant]
     Dosage: AFTER THE SUPPER
     Route: 048
     Dates: start: 20121120
  12. AMLODIPINE [Concomitant]
     Dosage: BEFORE IT KNEADS
     Route: 048
     Dates: start: 20120413
  13. AMLODIPINE [Concomitant]
     Dosage: BEFORE IT KNEADS
     Route: 048
     Dates: start: 20120807
  14. BLOPRESS [Concomitant]
     Dosage: BEFORE IT KNEADS
     Route: 048
  15. BLOPRESS [Concomitant]
     Dosage: BEFORE IT KNEADS
     Route: 048
     Dates: start: 20120807
  16. BLOPRESS [Concomitant]
     Dosage: BEFORE IT KNEADS
     Route: 048
     Dates: start: 20120413
  17. PYDOXAL [Concomitant]
     Dosage: AFTER EVERY MEAL
     Route: 048
     Dates: start: 20120413
  18. PYDOXAL [Concomitant]
     Dosage: AFTER EVERY MEAL
     Route: 048
     Dates: start: 20120807
  19. PYDOXAL [Concomitant]
     Dosage: AFTER EVERY MEAL
     Route: 048
     Dates: start: 20121120
  20. LUMIGAN [Concomitant]
     Dosage: DOSAGE IS UNCERTAIN. ?1 AND OCULUS UTERQUE
     Route: 047
     Dates: start: 20120413
  21. LUMIGAN [Concomitant]
     Dosage: DOSAGE IS UNCERTAIN. ?5 AND OCULUS UTERQUE
     Route: 047
     Dates: start: 20120807
  22. TRUSOPT [Concomitant]
     Dosage: DOSAGE IS UNCERTAIN. ?5ML AND OCULUS UTERQUE
     Route: 047
     Dates: start: 20120413
  23. TRUSOPT [Concomitant]
     Dosage: DOSAGE IS UNCERTAIN. ?25ML AND OCULUS UTERQUE
     Route: 047
     Dates: start: 20120807
  24. HYALEIN [Concomitant]
     Dosage: DOSAGE IS UNCERTAIN. ?OCULUS UTERQUE WHEN ONE BOTTLE AND EYES DRY
     Route: 047
     Dates: start: 20120413
  25. HYALEIN [Concomitant]
     Dosage: DOSAGE IS UNCERTAIN. ?OCULUS UTERQUE WHEN FIVE BOTTLES AND EYES DRY
     Route: 047
     Dates: start: 20120807
  26. METHYCOBAL [Concomitant]
     Dosage: AFTER EVERY MEAL
     Route: 048
     Dates: start: 20120413
  27. METHYCOBAL [Concomitant]
     Dosage: AFTER EVERY MEAL
     Route: 048
     Dates: start: 20120807
  28. METHYCOBAL [Concomitant]
     Dosage: AFTER EVERY MEAL
     Route: 048
     Dates: start: 20121120
  29. GASTER D [Concomitant]
     Dosage: BEFORE IT KNEADS
     Route: 048
     Dates: start: 20120807
  30. GASTER D [Concomitant]
     Dosage: BEFORE IT KNEADS
     Route: 048
     Dates: start: 20121120
  31. NOVAMIN (JAPAN) [Concomitant]
     Dosage: BEFORE IT KNEADS
     Route: 048
     Dates: start: 20120807
  32. NOVAMIN (JAPAN) [Concomitant]
     Dosage: BEFORE IT KNEADS
     Route: 048
     Dates: start: 20121120
  33. DEXALTIN [Concomitant]
     Dosage: DOSAGE IS UNCERTAIN
     Route: 049
     Dates: end: 2012
  34. GOSHAJINKIGAN [Concomitant]
     Route: 048
     Dates: start: 2012
  35. LOXONIN [Concomitant]
     Dosage: AT THE PAIN
     Route: 048
     Dates: start: 2012
  36. AZUNOL [Concomitant]
     Dosage: SEVERAL TIME DURING DAY
     Route: 049
     Dates: start: 2012

REACTIONS (2)
  - Metastases to central nervous system [Fatal]
  - Hepatic atrophy [Not Recovered/Not Resolved]
